FAERS Safety Report 21636219 (Version 1)
Quarter: 2022Q4

REPORT INFORMATION
  Report Type: Spontaneous
  Country: US (occurrence: US)
  Receive Date: 20221124
  Receipt Date: 20221124
  Transmission Date: 20230113
  Serious: Yes (Other)
  Sender: FDA-Public Use
  Company Number: US-STRIDES ARCOLAB LIMITED-2022SP002148

PATIENT
  Age: 38 Year
  Sex: Female

DRUGS (4)
  1. GABAPENTIN [Suspect]
     Active Substance: GABAPENTIN
     Indication: Product used for unknown indication
     Dosage: 2400 MILLIGRAM, BID,UP TO 2400MG TWICE DAILY
     Route: 048
  2. CLONAZEPAM [Suspect]
     Active Substance: CLONAZEPAM
     Indication: Product used for unknown indication
     Dosage: 5-10MG/DAY
     Route: 048
  3. CLONAZEPAM [Suspect]
     Active Substance: CLONAZEPAM
     Dosage: UNK; TAPERED DOSE
     Route: 065
  4. FENTANYL [Suspect]
     Active Substance: FENTANYL
     Indication: Product used for unknown indication
     Dosage: 2 GRAM/PER DAY, INJECTION
     Route: 065

REACTIONS (4)
  - Substance use disorder [Unknown]
  - Drug abuse [Unknown]
  - Drug withdrawal syndrome [Unknown]
  - Anxiety [Unknown]

NARRATIVE: CASE EVENT DATE: 20200101
